FAERS Safety Report 4882706-3 (Version None)
Quarter: 2006Q1

REPORT INFORMATION
  Report Type: 
  Country: None (occurrence: None)
  Receive Date: 20060113
  Receipt Date: 20060105
  Transmission Date: 20060701
  Serious: Yes (Hospitalization)
  Sender: FDA-Public Use
  Company Number: COV2-2005-00113

PATIENT
  Age: 44 Year
  Sex: Female
  Weight: 78 kg

DRUGS (5)
  1. FOSRENOL [Suspect]
     Indication: HYPERPHOSPHATAEMIA
     Dosage: SEE IMAGE
     Route: 048
     Dates: start: 20050516, end: 20050706
  2. FOSRENOL [Suspect]
     Indication: HYPERPHOSPHATAEMIA
     Dosage: SEE IMAGE
     Route: 048
     Dates: start: 20050728
  3. PREVACID [Concomitant]
  4. SENSIPAR [Concomitant]
  5. ZOCOR [Concomitant]

REACTIONS (1)
  - SMALL INTESTINAL OBSTRUCTION [None]
